FAERS Safety Report 12337701 (Version 10)
Quarter: 2017Q2

REPORT INFORMATION
  Report Type: Spontaneous
  Country: US (occurrence: US)
  Receive Date: 20160505
  Receipt Date: 20170626
  Transmission Date: 20170830
  Serious: Yes (Other)
  Sender: FDA-Public Use
  Company Number: US-ACTELION-A-US2016-135196

PATIENT
  Age: 66 Year
  Sex: Male

DRUGS (23)
  1. MOXATAG [Concomitant]
     Active Substance: AMOXICILLIN
  2. UPTRAVI [Suspect]
     Active Substance: SELEXIPAG
     Dosage: 800 MCG, BID
     Route: 048
  3. TRACLEER [Suspect]
     Active Substance: BOSENTAN
     Indication: PULMONARY ARTERIAL HYPERTENSION
     Dosage: 125 MG, BID
     Route: 048
     Dates: start: 20060817
  4. UPTRAVI [Suspect]
     Active Substance: SELEXIPAG
     Dosage: 200 MCG, BID
     Route: 048
     Dates: start: 20160415
  5. UPTRAVI [Suspect]
     Active Substance: SELEXIPAG
     Dosage: 1000 MCG, BID
     Route: 048
  6. METFORMIN HCL [Concomitant]
     Active Substance: METFORMIN HYDROCHLORIDE
  7. FUROSEMIDE. [Concomitant]
     Active Substance: FUROSEMIDE
  8. IRON [Concomitant]
     Active Substance: IRON
  9. METFORMIN [Concomitant]
     Active Substance: METFORMIN HYDROCHLORIDE
     Indication: ESSENTIAL HYPERTENSION
  10. UPTRAVI [Suspect]
     Active Substance: SELEXIPAG
     Dosage: 1400 MCG, BID
     Route: 048
  11. SILDENAFIL. [Concomitant]
     Active Substance: SILDENAFIL
     Dosage: 20 MG, TID
  12. CRESTOR [Concomitant]
     Active Substance: ROSUVASTATIN CALCIUM
  13. AMLODIPINE BESYLATE. [Concomitant]
     Active Substance: AMLODIPINE BESYLATE
  14. UNIVASC [Concomitant]
     Active Substance: MOEXIPRIL HYDROCHLORIDE
  15. LINUM USITATISSIMUM SEED [Concomitant]
  16. UPTRAVI [Suspect]
     Active Substance: SELEXIPAG
     Dosage: 1600 MCG, BID
     Route: 048
  17. UPTRAVI [Suspect]
     Active Substance: SELEXIPAG
     Dosage: 1200 MCG, BID
     Route: 048
     Dates: start: 20160902
  18. COLCHICINE. [Concomitant]
     Active Substance: COLCHICINE
  19. UPTRAVI [Suspect]
     Active Substance: SELEXIPAG
     Indication: PULMONARY ARTERIAL HYPERTENSION
     Dosage: 600 MCG, BID
     Route: 048
     Dates: start: 20170510
  20. ASPIRIN. [Concomitant]
     Active Substance: ASPIRIN
  21. PREVACID [Concomitant]
     Active Substance: LANSOPRAZOLE
  22. MULTIVITAMIN [Concomitant]
     Active Substance: VITAMINS
  23. GEMFIBROZIL. [Concomitant]
     Active Substance: GEMFIBROZIL

REACTIONS (8)
  - Headache [Unknown]
  - Oropharyngeal pain [Not Recovered/Not Resolved]
  - Pain [Not Recovered/Not Resolved]
  - Seasonal allergy [Recovering/Resolving]
  - Rhinorrhoea [Not Recovered/Not Resolved]
  - Myalgia [Unknown]
  - Diarrhoea [Unknown]
  - Flushing [Unknown]

NARRATIVE: CASE EVENT DATE: 201604
